FAERS Safety Report 8977792 (Version 6)
Quarter: 2013Q1

REPORT INFORMATION
  Report Type: Report from Study
  Country: BG (occurrence: BG)
  Receive Date: 20121219
  Receipt Date: 20130322
  Transmission Date: 20140127
  Serious: Yes (Death, Life-Threatening, Hospitalization, Disabling)
  Sender: FDA-Public Use
  Company Number: BG-CELGENEUS-022-21880-12121590

PATIENT
  Age: 79 Year
  Sex: Male
  Weight: 70 kg

DRUGS (16)
  1. REVLIMID [Suspect]
     Indication: PLASMA CELL MYELOMA RECURRENT
     Dosage: 25 MILLIGRAM
     Route: 048
     Dates: start: 20110404, end: 20110424
  2. REVLIMID [Suspect]
     Dosage: 25 MILLIGRAM
     Route: 048
     Dates: start: 20121114, end: 20121204
  3. DEXAMETHASONE [Suspect]
     Indication: PLASMA CELL MYELOMA RECURRENT
     Route: 065
     Dates: start: 20110404, end: 20110425
  4. DEXAMETHASONE [Suspect]
     Route: 065
     Dates: start: 20121226, end: 20130102
  5. ASPIRIN PROTECT [Concomitant]
     Indication: ANTICOAGULANT THERAPY
     Dosage: 100 MILLIGRAM
     Route: 048
     Dates: start: 20110403
  6. ASPIRIN PROTECT [Concomitant]
     Indication: ANTIPLATELET THERAPY
  7. CHLORTHALIDONE [Concomitant]
     Indication: HYPERTENSION
     Dosage: 100 MILLIGRAM
     Route: 048
     Dates: start: 20110620, end: 20130130
  8. KALINOR [Concomitant]
     Indication: HYPOKALAEMIA
     Dosage: 1 GRAM
     Route: 048
     Dates: start: 20120919, end: 20121114
  9. KALINOR [Concomitant]
     Dosage: 1 GRAM
     Route: 048
     Dates: start: 20121222
  10. LANSOPROL [Concomitant]
     Indication: GASTRIC PH DECREASED
     Dosage: 30 MILLIGRAM
     Route: 048
     Dates: start: 20110403, end: 20130129
  11. LANSOPROL [Concomitant]
     Dosage: 15 MILLIGRAM
     Route: 048
     Dates: start: 20110403, end: 20130129
  12. VERAPAMIL [Concomitant]
     Indication: HYPERTENSION
     Dosage: 40 MILLIGRAM
     Route: 048
     Dates: start: 20110620, end: 20130130
  13. ZOMETA [Concomitant]
     Indication: DRUG THERAPY
     Dosage: 4/5 MG/ML
     Route: 041
     Dates: start: 20110331
  14. DAKTARIN [Concomitant]
     Indication: OROPHARYNGEAL CANDIDIASIS
     Dosage: 40 MILLIGRAM
     Route: 061
     Dates: start: 20121212, end: 20121221
  15. NIZATIDINE [Concomitant]
     Indication: PROPHYLAXIS
     Dosage: 100 MILLIGRAM
     Route: 041
     Dates: start: 20121212, end: 20121221
  16. TRAMAL [Concomitant]
     Indication: CHEST PAIN
     Dosage: 2 MILLILITER
     Route: 041
     Dates: start: 20121218, end: 20121220

REACTIONS (1)
  - Bicytopenia [Fatal]
